FAERS Safety Report 19480442 (Version 1)
Quarter: 2021Q3

REPORT INFORMATION
  Report Type: Spontaneous
  Country: JP (occurrence: JP)
  Receive Date: 20210701
  Receipt Date: 20210701
  Transmission Date: 20211014
  Serious: Yes (Hospitalization)
  Sender: FDA-Public Use
  Company Number: JP-TEVA-2021-JP-1928667

PATIENT
  Age: 83 Year
  Sex: Female

DRUGS (3)
  1. GEMCITABINE. [Suspect]
     Active Substance: GEMCITABINE
     Indication: METASTASES TO LIVER
     Route: 065
  2. CARBOPLATIN. [Suspect]
     Active Substance: CARBOPLATIN
     Indication: METASTASES TO LIVER
     Route: 065
  3. PEMBROLIZUMAB. [Suspect]
     Active Substance: PEMBROLIZUMAB
     Indication: METASTASES TO LIVER
     Route: 065

REACTIONS (4)
  - Drug-induced liver injury [Recovering/Resolving]
  - Coagulopathy [Unknown]
  - Hepatic failure [Recovering/Resolving]
  - Hepatic enzyme increased [Unknown]
